FAERS Safety Report 22246108 (Version 5)
Quarter: 2024Q4

REPORT INFORMATION
  Report Type: Spontaneous
  Country: US (occurrence: US)
  Receive Date: 20230424
  Receipt Date: 20241009
  Transmission Date: 20250115
  Serious: Yes (Hospitalization, Other)
  Sender: PFIZER
  Company Number: US-PFIZER INC-PV202300072712

PATIENT
  Age: 80 Year
  Sex: Male

DRUGS (2)
  1. CIBINQO [Suspect]
     Active Substance: ABROCITINIB
     Indication: Dermatitis atopic
     Dosage: 100MG QD (ONCE A DAY)
     Route: 048
     Dates: start: 20230426
  2. CIBINQO [Suspect]
     Active Substance: ABROCITINIB
     Indication: Eczema

REACTIONS (3)
  - Hip arthroplasty [Unknown]
  - Dementia [Not Recovered/Not Resolved]
  - Confusional state [Unknown]
